FAERS Safety Report 4382966-1 (Version None)
Quarter: 2004Q2

REPORT INFORMATION
  Report Type: 
  Country: None (occurrence: None)
  Receive Date: 20040617
  Receipt Date: 20040609
  Transmission Date: 20050107
  Serious: Yes (Other)
  Sender: FDA-Public Use
  Company Number: 2004-113164-NL

PATIENT
  Age: 47 Year
  Sex: Male

DRUGS (6)
  1. REMERON [Suspect]
     Indication: MAJOR DEPRESSION
     Dosage: 30 MG DAILY
  2. REMERON [Suspect]
     Indication: MAJOR DEPRESSION
  3. VENLAFAXINE [Suspect]
     Indication: DEPRESSION
     Dosage: 300 MG DAILY
  4. VENLAFAXINE [Suspect]
     Indication: DEPRESSION
  5. TRAMADOL [Suspect]
     Indication: PAIN
     Dosage: 300 MG DAILY
  6. TRAMADOL [Suspect]
     Indication: PAIN
     Dosage: 400 MG DAILY

REACTIONS (9)
  - AGITATION [None]
  - CHILLS [None]
  - CONFUSIONAL STATE [None]
  - HYPERHIDROSIS [None]
  - HYPERREFLEXIA [None]
  - MYDRIASIS [None]
  - MYOCLONUS [None]
  - PYREXIA [None]
  - TACHYCARDIA [None]
